FAERS Safety Report 4515927-X (Version None)
Quarter: 2004Q4

REPORT INFORMATION
  Report Type: 
  Country: None (occurrence: None)
  Receive Date: 20041129
  Receipt Date: 20041129
  Transmission Date: 20050328
  Serious: No
  Sender: FDA-Public Use
  Company Number: None

PATIENT
  Sex: Female
  Weight: 90 kg

DRUGS (9)
  1. CISATRICURIUM 10MG/ML [Suspect]
     Indication: ANAESTHESIA
     Dosage: 30 MG ONCE INTRAVENOU
     Route: 042
     Dates: start: 20040625, end: 20040625
  2. CISATRICURIUM 10MG/ML [Suspect]
     Indication: NEPHROLITHIASIS
     Dosage: 30 MG ONCE INTRAVENOU
     Route: 042
     Dates: start: 20040625, end: 20040625
  3. CISATRICURIUM 10MG/ML [Suspect]
     Indication: RENAL SURGERY
     Dosage: 30 MG ONCE INTRAVENOU
     Route: 042
     Dates: start: 20040625, end: 20040625
  4. SEVOFLOURANE [Concomitant]
  5. VERSED [Concomitant]
  6. FENTANYL [Concomitant]
  7. PROPOFOL [Concomitant]
  8. CEFAZOLIN [Concomitant]
  9. FAMOTIDINE [Concomitant]

REACTIONS (1)
  - MEDICATION ERROR [None]
